FAERS Safety Report 4811456-4 (Version None)
Quarter: 2005Q4

REPORT INFORMATION
  Report Type: 
  Country: None (occurrence: None)
  Receive Date: 20051027
  Receipt Date: 20011119
  Transmission Date: 20060501
  Serious: Yes (Hospitalization)
  Sender: FDA-Public Use
  Company Number: BD-ROCHE-301907

PATIENT
  Age: 53 Year
  Sex: Male
  Weight: 61 kg

DRUGS (3)
  1. PEG-INTERFERON ALFA 2A (RO 25-8310) [Suspect]
     Route: 058
     Dates: start: 20010412, end: 20011014
  2. PEG-INTERFERON ALFA 2A (RO 25-8310) [Suspect]
     Route: 058
     Dates: start: 20011014, end: 20011021
  3. PROPRANOLOL HYDROCHLORIDE [Concomitant]
     Dates: start: 20010720

REACTIONS (2)
  - CONDITION AGGRAVATED [None]
  - THALASSAEMIA BETA [None]
